FAERS Safety Report 8878914 (Version 1)
Quarter: 2012Q4

REPORT INFORMATION
  Report Type: 
  Country: US (occurrence: US)
  Receive Date: 20121026
  Receipt Date: 20121026
  Transmission Date: 20130627
  Serious: No
  Sender: FDA-Public Use
  Company Number: US-PFIZER INC-2012267378

PATIENT
  Sex: Female

DRUGS (1)
  1. LYRICA [Suspect]
     Indication: NEURALGIA
     Dosage: UNK

REACTIONS (5)
  - Drug ineffective [Unknown]
  - Pain [Unknown]
  - Hyperaesthesia [Unknown]
  - Hot flush [Unknown]
  - Muscle spasms [Unknown]
